FAERS Safety Report 7456767-1 (Version None)
Quarter: 2011Q2

REPORT INFORMATION
  Report Type: 
  Country: None (occurrence: None)
  Receive Date: 20110504
  Receipt Date: 20110502
  Transmission Date: 20111010
  Serious: Yes (Life-Threatening, Hospitalization, Other)
  Sender: FDA-Public Use
  Company Number: FR-BRISTOL-MYERS SQUIBB COMPANY-15702020

PATIENT
  Age: 32 Year
  Sex: Female

DRUGS (14)
  1. INIPOMP [Concomitant]
  2. SKENAN [Suspect]
     Indication: PAIN IN EXTREMITY
     Route: 048
     Dates: start: 20110220, end: 20110304
  3. ANTIVITAMIN K [Suspect]
  4. KESTIN [Concomitant]
  5. APROVEL [Suspect]
  6. DIGOXINE [Suspect]
  7. PREVISCAN [Concomitant]
  8. ACTISKENAN [Suspect]
     Indication: PAIN IN EXTREMITY
     Route: 048
     Dates: start: 20110220, end: 20110304
  9. RIVOTRIL [Concomitant]
  10. DIFFU-K [Concomitant]
  11. SPIRONOLACTONE [Concomitant]
  12. DAFALGAN [Suspect]
  13. LASIX [Concomitant]
  14. BISOPROLOL FUMARATE [Concomitant]

REACTIONS (5)
  - VOMITING [None]
  - MULTIPLE DRUG OVERDOSE [None]
  - HYPOVENTILATION [None]
  - RENAL FAILURE [None]
  - METABOLIC ACIDOSIS [None]
